FAERS Safety Report 14587811 (Version 1)
Quarter: 2018Q1

REPORT INFORMATION
  Report Type: Report from Study
  Country: NZ (occurrence: NZ)
  Receive Date: 20180301
  Receipt Date: 20180301
  Transmission Date: 20180509
  Serious: Yes (Other)
  Sender: FDA-Public Use
  Company Number: NZ-MYLANLABS-2018M1011865

PATIENT
  Age: 22 Year
  Sex: Male

DRUGS (1)
  1. CLOZARIL [Suspect]
     Active Substance: CLOZAPINE
     Indication: SCHIZOPHRENIA
     Dosage: UNK
     Route: 048
     Dates: start: 20180117, end: 2018

REACTIONS (5)
  - White blood cell count increased [Recovering/Resolving]
  - Myocarditis [Unknown]
  - Monocyte count increased [Recovering/Resolving]
  - Neutrophil count increased [Recovering/Resolving]
  - Red cell distribution width decreased [Not Recovered/Not Resolved]

NARRATIVE: CASE EVENT DATE: 2018
